FAERS Safety Report 21116952 (Version 1)
Quarter: 2022Q3

REPORT INFORMATION
  Report Type: Report from Study
  Country: ES (occurrence: ES)
  Receive Date: 20220722
  Receipt Date: 20220722
  Transmission Date: 20221027
  Serious: Yes (Other)
  Sender: FDA-Public Use
  Company Number: None

PATIENT
  Age: 69 Year
  Sex: Female

DRUGS (6)
  1. PIRFENIDONE [Suspect]
     Active Substance: PIRFENIDONE
     Indication: Pulmonary fibrosis
     Dosage: PIRFENIDONA (8299A) , UNIT DOSE : 534 MG , FREQUENCY TIME : 1 DAYS , DURATION : 16 DAYS
     Dates: start: 20220324, end: 20220409
  2. HYDROCHLOROTHIAZIDE\LOSARTAN [Concomitant]
     Active Substance: HYDROCHLOROTHIAZIDE\LOSARTAN
     Indication: Hypertension
     Dosage: LOSARTAN + HIDROCLOROTIAZIDA , UNIT DOSE : 1 DF , FREQUENCY TIME : 1 DAYS
     Dates: start: 201608
  3. PAROXETINE [Concomitant]
     Active Substance: PAROXETINE
     Indication: Depression
     Dosage: PAROXETINA (2586A) , UNIT DOSE : 20 MG , FREQUENCY TIME : 1 DAYS
     Dates: start: 201305
  4. ALPRAZOLAM [Concomitant]
     Active Substance: ALPRAZOLAM
     Indication: Insomnia
     Dosage: ALPRAZOLAM (99A) , UNIT DOSE : 1 MG , FREQUENCY TIME : 1 DAYS
     Dates: start: 200709
  5. REPAGLINIDE [Concomitant]
     Active Substance: REPAGLINIDE
     Indication: Diabetes mellitus
     Dosage: REPAGLINIDA (1063A) , UNIT  DOSE : 5 MG , FREQUENCY TIME : 1 DAYS
     Dates: start: 201806
  6. LEVOTHYROXINE SODIUM [Concomitant]
     Active Substance: LEVOTHYROXINE SODIUM
     Indication: Hypothyroidism
     Dosage: FORM STRENGTH : 50 MICROGRAMS TABLETS, 100 TABLETS , UNIT DOSE : 50 MICROGRAM , FREQUENCY TIME : 1 D
     Dates: start: 200601

REACTIONS (1)
  - Diarrhoea [Recovered/Resolved]

NARRATIVE: CASE EVENT DATE: 20220405
